FAERS Safety Report 11460159 (Version 7)
Quarter: 2016Q1

REPORT INFORMATION
  Report Type: Report from Study
  Country: US (occurrence: US)
  Receive Date: 20150904
  Receipt Date: 20160225
  Transmission Date: 20160525
  Serious: No
  Sender: FDA-Public Use
  Company Number: PHEH2015US015774

PATIENT
  Sex: Female
  Weight: 108.84 kg

DRUGS (1)
  1. GILENYA [Suspect]
     Active Substance: FINGOLIMOD HYDROCHLORIDE
     Indication: MULTIPLE SCLEROSIS
     Dosage: 0.5 MG, QD
     Route: 048
     Dates: start: 20130806

REACTIONS (12)
  - Paraesthesia [Unknown]
  - Anxiety [Unknown]
  - Neuralgia [Unknown]
  - Migraine [Unknown]
  - Hypokinesia [Not Recovered/Not Resolved]
  - Movement disorder [Unknown]
  - Insomnia [Not Recovered/Not Resolved]
  - Spinal pain [Not Recovered/Not Resolved]
  - Headache [Unknown]
  - Pain [Not Recovered/Not Resolved]
  - Muscle tightness [Not Recovered/Not Resolved]
  - Back pain [Not Recovered/Not Resolved]
